FAERS Safety Report 7674786-7 (Version None)
Quarter: 2011Q3

REPORT INFORMATION
  Report Type: 
  Country: None (occurrence: None)
  Receive Date: 20110810
  Receipt Date: 20110801
  Transmission Date: 20111222
  Serious: Yes (Other)
  Sender: FDA-Public Use
  Company Number: JP-GLAXOSMITHKLINE-B0737347A

PATIENT
  Age: 11 Year
  Sex: Male
  Weight: 52 kg

DRUGS (5)
  1. METHYLPREDNISOLONE [Concomitant]
     Route: 065
  2. ZOVIRAX [Suspect]
     Indication: PRODUCT USED FOR UNKNOWN INDICATION
     Route: 048
  3. DIAZEPAM [Suspect]
     Indication: PRODUCT USED FOR UNKNOWN INDICATION
     Route: 065
  4. THIAMYLAL SODIUM [Suspect]
     Indication: PRODUCT USED FOR UNKNOWN INDICATION
     Route: 065
  5. MIDAZOLAM HCL [Suspect]
     Indication: PRODUCT USED FOR UNKNOWN INDICATION
     Route: 065

REACTIONS (15)
  - RENAL FAILURE [None]
  - METABOLIC ACIDOSIS [None]
  - DRUG RASH WITH EOSINOPHILIA AND SYSTEMIC SYMPTOMS [None]
  - HYPOTHERMIA [None]
  - LIVER DISORDER [None]
  - RESPIRATORY DISORDER [None]
  - CONTINUOUS HAEMODIAFILTRATION [None]
  - HAEMOPERFUSION [None]
  - PLASMAPHERESIS [None]
  - BLOOD PRESSURE DECREASED [None]
  - ANURIA [None]
  - CONVULSION [None]
  - LOSS OF CONSCIOUSNESS [None]
  - DISSEMINATED INTRAVASCULAR COAGULATION [None]
  - BLOOD CREATINE PHOSPHOKINASE INCREASED [None]
